FAERS Safety Report 4742736-9 (Version None)
Quarter: 2005Q3

REPORT INFORMATION
  Report Type: 
  Country: None (occurrence: None)
  Receive Date: 20050810
  Receipt Date: 20050810
  Transmission Date: 20060218
  Serious: Yes (Other)
  Sender: FDA-Public Use
  Company Number: None

PATIENT
  Age: 61 Year
  Sex: Female
  Weight: 77.1115 kg

DRUGS (1)
  1. EFFEXOR [Suspect]
     Indication: ANTIDEPRESSANT THERAPY
     Dosage: 75
     Dates: start: 20030101, end: 20040101

REACTIONS (4)
  - CARDIAC VALVE DISEASE [None]
  - DIARRHOEA [None]
  - DILATATION ATRIAL [None]
  - HYPERTENSION [None]
